FAERS Safety Report 9071567 (Version 1)
Quarter: 2013Q1

REPORT INFORMATION
  Report Type: Spontaneous
  Country: JP (occurrence: JP)
  Receive Date: 20130129
  Receipt Date: 20130129
  Transmission Date: 20140127
  Serious: Yes (Other)
  Sender: FDA-Public Use
  Company Number: JP-ROCHE-1141633

PATIENT
  Age: 74 None
  Sex: Male
  Weight: 48 kg

DRUGS (23)
  1. AVASTIN [Suspect]
     Indication: ADENOSQUAMOUS CELL LUNG CANCER
     Route: 041
     Dates: start: 20120518, end: 20120518
  2. AVASTIN [Suspect]
     Indication: ADENOSQUAMOUS CELL LUNG CANCER
     Route: 041
     Dates: start: 20120614, end: 20120614
  3. AVASTIN [Suspect]
     Indication: ADENOSQUAMOUS CELL LUNG CANCER
     Route: 041
     Dates: start: 20120706, end: 20120706
  4. AVASTIN [Suspect]
     Indication: ADENOSQUAMOUS CELL LUNG CANCER
     Route: 041
     Dates: start: 20120727, end: 20120727
  5. AVASTIN [Suspect]
     Indication: ADENOSQUAMOUS CELL LUNG CANCER
     Route: 041
     Dates: start: 20120817, end: 20120817
  6. AVASTIN [Suspect]
     Indication: ADENOSQUAMOUS CELL LUNG CANCER
     Route: 041
     Dates: start: 20120907, end: 20120907
  7. CARBOPLATIN [Suspect]
     Indication: ADENOSQUAMOUS CELL LUNG CANCER
     Route: 041
     Dates: start: 20120518, end: 20120518
  8. CARBOPLATIN [Suspect]
     Route: 041
     Dates: start: 20120614, end: 20120614
  9. CARBOPLATIN [Suspect]
     Route: 041
     Dates: start: 20120706, end: 20120706
  10. ALIMTA [Concomitant]
     Indication: ADENOSQUAMOUS CELL LUNG CANCER
     Route: 041
     Dates: start: 20120518, end: 20120518
  11. ALIMTA [Concomitant]
     Indication: ADENOSQUAMOUS CELL LUNG CANCER
     Route: 041
     Dates: start: 20120614, end: 20120614
  12. ALIMTA [Concomitant]
     Indication: ADENOSQUAMOUS CELL LUNG CANCER
     Route: 041
     Dates: start: 20120706, end: 20120706
  13. ALIMTA [Concomitant]
     Indication: ADENOSQUAMOUS CELL LUNG CANCER
     Route: 041
     Dates: start: 20120727, end: 20120727
  14. ALIMTA [Concomitant]
     Indication: ADENOSQUAMOUS CELL LUNG CANCER
     Route: 041
     Dates: start: 20120817, end: 20120817
  15. ALIMTA [Concomitant]
     Indication: ADENOSQUAMOUS CELL LUNG CANCER
     Route: 041
     Dates: start: 20120907, end: 20120907
  16. TRIAZOLAM [Concomitant]
     Indication: INSOMNIA
     Route: 048
  17. SPIRIVA [Concomitant]
     Indication: CHRONIC OBSTRUCTIVE PULMONARY DISEASE
     Dosage: DOSAGE IS UNCERTAIN.
     Route: 055
  18. PANVITAN [Concomitant]
     Indication: PROPHYLAXIS
     Route: 048
     Dates: start: 20120511
  19. METHYCOBAL [Concomitant]
     Indication: PROPHYLAXIS
     Route: 030
     Dates: start: 20120511
  20. EMEND [Concomitant]
     Indication: PROPHYLAXIS OF NAUSEA AND VOMITING
     Dosage: WHEN ANTICANCER AGENT IS ADMINISTERED
     Route: 048
  21. NAUZELIN [Concomitant]
     Indication: PROPHYLAXIS OF NAUSEA AND VOMITING
     Dosage: WHEN ANTICANCER AGENT IS ADMINISTERED
     Route: 048
  22. PEMETREXED [Concomitant]
  23. CISPLATIN [Concomitant]

REACTIONS (9)
  - Cerebral haemorrhage [Not Recovered/Not Resolved]
  - Subarachnoid haemorrhage [Unknown]
  - Anaphylactic shock [Recovering/Resolving]
  - Haemorrhage [Recovering/Resolving]
  - Infusion site swelling [Unknown]
  - Haematoma [Recovering/Resolving]
  - Pain in extremity [Unknown]
  - Infusion site infection [Unknown]
  - Cerebral haematoma [Unknown]
